FAERS Safety Report 7484167-7 (Version None)
Quarter: 2011Q2

REPORT INFORMATION
  Report Type: 
  Country: None (occurrence: None)
  Receive Date: 20110513
  Receipt Date: 20110513
  Transmission Date: 20111010
  Serious: Yes (Other)
  Sender: FDA-Public Use
  Company Number: None

PATIENT
  Age: 48 Year
  Sex: Male
  Weight: 72.1219 kg

DRUGS (1)
  1. ATRIPLA [Suspect]
     Indication: ACQUIRED IMMUNODEFICIENCY SYNDROME
     Dosage: 1 TAB PO QHS
     Route: 048
     Dates: start: 20110418, end: 20110425

REACTIONS (1)
  - RASH PAPULAR [None]
